FAERS Safety Report 23449454 (Version 2)
Quarter: 2024Q1

REPORT INFORMATION
  Report Type: Spontaneous
  Country: US (occurrence: US)
  Receive Date: 20240129
  Receipt Date: 20240207
  Transmission Date: 20240410
  Serious: Yes (Other)
  Sender: FDA-Public Use
  Company Number: US-MLMSERVICE-20240110-4766767-1

PATIENT
  Age: 49 Year
  Sex: Female

DRUGS (4)
  1. HYDROXYCHLOROQUINE [Suspect]
     Active Substance: HYDROXYCHLOROQUINE
     Indication: Systemic lupus erythematosus
     Dosage: 3000 GRAM (CUMULATIVE DOSE OVER 3,000 G)
     Route: 065
     Dates: end: 2011
  2. HYDROXYCHLOROQUINE [Suspect]
     Active Substance: HYDROXYCHLOROQUINE
     Dosage: 3000 GRAM (CUMULATIVE DOSE OVER 3,000 G)
     Route: 065
     Dates: start: 1985, end: 2011
  3. HYDROXYCHLOROQUINE [Suspect]
     Active Substance: HYDROXYCHLOROQUINE
     Dosage: 3000 GRAM (CUMULATIVE DOSE OVER 3,000 G)
     Route: 065
     Dates: start: 1999, end: 2011
  4. PREDNISONE [Concomitant]
     Active Substance: PREDNISONE
     Indication: Systemic lupus erythematosus
     Dosage: UNK
     Route: 065
     Dates: start: 1994

REACTIONS (1)
  - Maculopathy [Unknown]

NARRATIVE: CASE EVENT DATE: 20090201
